FAERS Safety Report 9619771 (Version 1)
Quarter: 2013Q4

REPORT INFORMATION
  Report Type: Spontaneous
  Country: JP (occurrence: JP)
  Receive Date: 20131014
  Receipt Date: 20131014
  Transmission Date: 20140711
  Serious: Yes (Other)
  Sender: FDA-Public Use
  Company Number: JP-GLAXOSMITHKLINE-B0926717A

PATIENT
  Age: 42 Year
  Sex: Male
  Weight: 80 kg

DRUGS (10)
  1. ULTIVA [Suspect]
     Indication: INDUCTION OF ANAESTHESIA
     Route: 042
  2. CARVEDILOL [Suspect]
     Indication: HYPERTENSION
     Route: 048
  3. ANTIHYPERTENSIVES [Concomitant]
     Indication: HYPERTENSION
     Route: 048
  4. VASODILATORS [Concomitant]
     Indication: HYPERTENSION
     Route: 048
  5. PROPOFOL [Concomitant]
     Indication: INDUCTION OF ANAESTHESIA
     Route: 042
  6. FENTANYL CITRATE [Concomitant]
     Indication: INDUCTION OF ANAESTHESIA
     Route: 042
  7. ROCURONIUM BROMIDE [Concomitant]
     Indication: INDUCTION OF ANAESTHESIA
     Route: 042
  8. LIDOCAINE HCL + EPINEPHRINE [Concomitant]
     Indication: INFILTRATION ANAESTHESIA
     Dosage: 12.6ML PER DAY
     Route: 058
  9. AZELNIDIPINE [Concomitant]
     Indication: HYPERTENSION
     Route: 048
  10. CANDESARTAN CILEXETIL [Concomitant]
     Indication: HYPERTENSION
     Route: 048

REACTIONS (1)
  - Sinus arrest [Recovered/Resolved]
